FAERS Safety Report 6826047-3 (Version None)
Quarter: 2010Q3

REPORT INFORMATION
  Report Type: 
  Country: None (occurrence: None)
  Receive Date: 20100709
  Receipt Date: 20100701
  Transmission Date: 20110219
  Serious: Yes (Hospitalization)
  Sender: FDA-Public Use
  Company Number: DE-ASTRAZENECA-2010SE30750

PATIENT
  Age: 21 Year
  Sex: Female

DRUGS (4)
  1. ENTOCORT EC [Suspect]
     Route: 048
     Dates: start: 20100121
  2. ACETAMINOPHEN [Suspect]
     Route: 048
     Dates: start: 20100121
  3. AMBROXOL [Suspect]
     Route: 048
     Dates: start: 20100121
  4. AZATHIOPRIN [Suspect]
     Route: 048
     Dates: start: 20100121

REACTIONS (3)
  - NAUSEA [None]
  - SUICIDE ATTEMPT [None]
  - VOMITING [None]
